FAERS Safety Report 7657242-1 (Version None)
Quarter: 2011Q3

REPORT INFORMATION
  Report Type: 
  Country: None (occurrence: None)
  Receive Date: 20110804
  Receipt Date: 20110723
  Transmission Date: 20111222
  Serious: Yes (Other)
  Sender: FDA-Public Use
  Company Number: PHHY2011US67604

PATIENT
  Age: 35 Year
  Sex: Male

DRUGS (6)
  1. TACROLIMUS [Concomitant]
     Indication: IMMUNOSUPPRESSION
     Dosage: 0.05 MG/KG, BID
  2. MYCOPHENOLIC ACID [Suspect]
     Indication: IMMUNOSUPPRESSION
     Dosage: 720 MG, BID
  3. SIROLIMUS [Concomitant]
     Dosage: 10 MG ONCE
  4. SIROLIMUS [Concomitant]
     Dosage: 5 MG ONCE
  5. THYMOGLOBULIN [Concomitant]
     Indication: IMMUNOSUPPRESSION
     Dosage: 1.5 MG/KG/DAY FOR FOUR DAYS
     Route: 042
  6. METHYLPREDNISOLONE [Concomitant]
     Indication: IMMUNOSUPPRESSION
     Dosage: FOR FOUR DAYS

REACTIONS (7)
  - PROTEINURIA [None]
  - FOCAL SEGMENTAL GLOMERULOSCLEROSIS [None]
  - THROMBOTIC MICROANGIOPATHY [None]
  - MESANGIOPROLIFERATIVE GLOMERULONEPHRITIS [None]
  - ANTINUCLEAR ANTIBODY POSITIVE [None]
  - BLOOD CREATININE INCREASED [None]
  - LUPUS NEPHRITIS [None]
